FAERS Safety Report 15264625 (Version 2)
Quarter: 2018Q4

REPORT INFORMATION
  Report Type: Report from Study
  Country: JP (occurrence: JP)
  Receive Date: 20180810
  Receipt Date: 20181005
  Transmission Date: 20190204
  Serious: Yes (Death, Life-Threatening, Other)
  Sender: FDA-Public Use
  Company Number: PHJP2018JP013672

PATIENT
  Age: 72 Year
  Sex: Female

DRUGS (5)
  1. RINDERON V [Concomitant]
     Active Substance: BETAMETHASONE VALERATE
     Indication: NON-SMALL CELL LUNG CANCER STAGE IV
     Dosage: 4 MG, QD
     Route: 065
  2. GLYCEOL [Suspect]
     Active Substance: GLYCERIN
     Indication: NON-SMALL CELL LUNG CANCER STAGE IV
     Dosage: 300 ML, QD
     Route: 065
     Dates: start: 20171023, end: 20171027
  3. ZYKADIA [Suspect]
     Active Substance: CERITINIB
     Indication: NON-SMALL CELL LUNG CANCER STAGE IV
     Dosage: 750 MG, QD
     Route: 048
     Dates: start: 20171024, end: 20171123
  4. OXYCONTIN [Suspect]
     Active Substance: OXYCODONE HYDROCHLORIDE
     Indication: NON-SMALL CELL LUNG CANCER STAGE IV
     Dosage: 20 MG, QD
     Route: 048
     Dates: start: 20170629, end: 20171122
  5. NEOPHAGEN [Concomitant]
     Active Substance: GLYCYRRHIZIN
     Indication: LIVER DISORDER
     Dosage: 20 ML, QD
     Route: 065

REACTIONS (21)
  - Non-small cell lung cancer stage IV [Fatal]
  - Brain oedema [Fatal]
  - Concomitant disease progression [Unknown]
  - Seizure [Not Recovered/Not Resolved]
  - Hypokalaemia [Recovered/Resolved]
  - Oedema peripheral [Recovering/Resolving]
  - Constipation [Not Recovered/Not Resolved]
  - Nausea [Recovering/Resolving]
  - Dysphagia [Unknown]
  - Diarrhoea [Recovering/Resolving]
  - Depressed level of consciousness [Not Recovered/Not Resolved]
  - Atelectasis [Not Recovered/Not Resolved]
  - General physical health deterioration [Unknown]
  - Back pain [Not Recovered/Not Resolved]
  - Pyrexia [Unknown]
  - Malignant neoplasm progression [Fatal]
  - Urinary retention [Recovered/Resolved]
  - Alopecia [Not Recovered/Not Resolved]
  - Urinary tract infection [Not Recovered/Not Resolved]
  - Metastases to central nervous system [Fatal]
  - Diabetes mellitus [Not Recovered/Not Resolved]

NARRATIVE: CASE EVENT DATE: 20171024
